FAERS Safety Report 16759922 (Version 1)
Quarter: 2019Q3

REPORT INFORMATION
  Report Type: Spontaneous
  Country: JP (occurrence: JP)
  Receive Date: 20190830
  Receipt Date: 20190830
  Transmission Date: 20191005
  Serious: Yes (Hospitalization, Other)
  Sender: FDA-Public Use
  Company Number: JP-ELI_LILLY_AND_COMPANY-JP201908005508

PATIENT
  Age: 56 Year
  Sex: Female

DRUGS (6)
  1. ABRAXANE [Concomitant]
     Active Substance: PACLITAXEL
     Indication: METASTATIC GASTRIC CANCER
     Dosage: UNK
     Route: 041
     Dates: start: 20190719
  2. PROCHLORPERAZINE. [Concomitant]
     Active Substance: PROCHLORPERAZINE
  3. MIYA-BM [Concomitant]
     Active Substance: CLOSTRIDIUM BUTYRICUM SPORES STRAIN M-55
  4. K-SUPPLY [Concomitant]
     Active Substance: POTASSIUM CHLORIDE
  5. LOPERAMIDE [Concomitant]
     Active Substance: LOPERAMIDE
  6. CYRAMZA [Suspect]
     Active Substance: RAMUCIRUMAB
     Indication: METASTATIC GASTRIC CANCER
     Dosage: 8 MG/KG
     Route: 041
     Dates: start: 20190719

REACTIONS (2)
  - Diarrhoea [Recovering/Resolving]
  - Tumour invasion [Unknown]

NARRATIVE: CASE EVENT DATE: 20190726
